FAERS Safety Report 21276510 (Version 1)
Quarter: 2022Q3

REPORT INFORMATION
  Report Type: Spontaneous
  Country: US (occurrence: US)
  Receive Date: 20220831
  Receipt Date: 20220831
  Transmission Date: 20221027
  Serious: No
  Sender: FDA-Public Use
  Company Number: US-ABBVIE-22K-163-4410665-00

PATIENT

DRUGS (1)
  1. HUMIRA [Suspect]
     Active Substance: ADALIMUMAB
     Indication: Product used for unknown indication
     Route: 058

REACTIONS (6)
  - Blood glucose abnormal [Unknown]
  - Feeling abnormal [Unknown]
  - Type 2 diabetes mellitus [Unknown]
  - Hot flush [Unknown]
  - Mobility decreased [Unknown]
  - Vision blurred [Unknown]
